APPROVED DRUG PRODUCT: VICTRELIS
Active Ingredient: BOCEPREVIR
Strength: 200MG
Dosage Form/Route: CAPSULE;ORAL
Application: N202258 | Product #001
Applicant: MERCK SHARP AND DOHME CORP
Approved: May 13, 2011 | RLD: No | RS: No | Type: DISCN

PATENTS:
Patent 8119602 | Expires: Mar 17, 2027
Patent 7772178 | Expires: Nov 11, 2027